FAERS Safety Report 6907610-8 (Version None)
Quarter: 2010Q3

REPORT INFORMATION
  Report Type: 
  Country: None (occurrence: None)
  Receive Date: 20100805
  Receipt Date: 20100728
  Transmission Date: 20110219
  Serious: No
  Sender: FDA-Public Use
  Company Number: 2010BI003139

PATIENT
  Age: 51 Year
  Sex: Female

DRUGS (2)
  1. TYSABRI [Suspect]
     Indication: MULTIPLE SCLEROSIS
     Route: 042
     Dates: start: 20080225, end: 20080522
  2. TYSABRI [Suspect]
     Route: 042
     Dates: start: 20090618, end: 20091201

REACTIONS (2)
  - MULTIPLE SCLEROSIS RELAPSE [None]
  - PYREXIA [None]
